FAERS Safety Report 10220078 (Version 1)
Quarter: 2014Q2

REPORT INFORMATION
  Report Type: Report from Study
  Country: BR (occurrence: BR)
  Receive Date: 20140605
  Receipt Date: 20140605
  Transmission Date: 20141212
  Serious: Yes (Hospitalization, Other)
  Sender: FDA-Public Use
  Company Number: BR-ABBVIE-14P-020-1239471-00

PATIENT
  Age: 69 Year
  Sex: Female
  Weight: 72 kg

DRUGS (4)
  1. HUMIRA [Suspect]
     Indication: RHEUMATOID ARTHRITIS
     Route: 058
     Dates: start: 20140401
  2. HUMAN INSULINK [Concomitant]
     Indication: DIABETES MELLITUS
     Dates: start: 2007
  3. HUMALOG [Concomitant]
     Indication: DIABETES MELLITUS
     Dates: start: 20131201
  4. DEPURA [Concomitant]
     Indication: ASTHENIA
     Route: 048
     Dates: start: 20120101

REACTIONS (7)
  - Fall [Recovering/Resolving]
  - Rib fracture [Recovering/Resolving]
  - Upper limb fracture [Recovering/Resolving]
  - Pulmonary embolism [Recovered/Resolved]
  - Influenza [Recovered/Resolved]
  - Oropharyngeal pain [Recovered/Resolved]
  - Rhinorrhoea [Recovered/Resolved]
